FAERS Safety Report 8865399 (Version 1)
Quarter: 2012Q4

REPORT INFORMATION
  Report Type: 
  Country: US (occurrence: US)
  Receive Date: 20121024
  Receipt Date: 20121024
  Transmission Date: 20130627
  Serious: No
  Sender: FDA-Public Use
  Company Number: US-AMGEN-USASP2012003180

PATIENT
  Age: 60 Year
  Sex: Female
  Weight: 61.22 kg

DRUGS (3)
  1. ENBREL [Suspect]
     Indication: PSORIASIS
     Dosage: 50 mg, qwk
     Route: 058
  2. BONIVA [Concomitant]
     Dosage: 3 mg, UNK
  3. CALCIUM [Concomitant]

REACTIONS (5)
  - Therapeutic response decreased [Unknown]
  - Arthralgia [Unknown]
  - Road traffic accident [Unknown]
  - Nasopharyngitis [Unknown]
  - Psoriasis [Unknown]
